FAERS Safety Report 24055315 (Version 1)
Quarter: 2024Q3

REPORT INFORMATION
  Report Type: Spontaneous
  Country: US (occurrence: None)
  Receive Date: 20240703
  Receipt Date: 20240703
  Transmission Date: 20241017
  Serious: Yes (Other)
  Sender: Public
  Company Number: None

PATIENT
  Age: 62 Year
  Sex: Male
  Weight: 81.45 kg

DRUGS (10)
  1. APRETUDE [Suspect]
     Active Substance: CABOTEGRAVIR
     Indication: Prophylaxis against HIV infection
     Route: 030
     Dates: start: 20240522, end: 20240625
  2. VALACYCLOVIR HYDROCHLORIDE [Concomitant]
     Active Substance: VALACYCLOVIR HYDROCHLORIDE
     Dates: start: 20190101, end: 20240703
  3. cabotegravir 30 mg [Concomitant]
  4. AMLODIPINE [Concomitant]
     Active Substance: AMLODIPINE BESYLATE
  5. sildenafil citrate 50 mg [Concomitant]
  6. LOSARTAN [Concomitant]
     Active Substance: LOSARTAN
  7. Vocabria 30 mg [Concomitant]
  8. ELESTAT [Concomitant]
     Active Substance: EPINASTINE HYDROCHLORIDE
     Dates: start: 20190101, end: 20240703
  9. azelastine nasal 137 mcg/inh spray [Concomitant]
  10. MONTELUKAST SODIUM [Concomitant]
     Active Substance: MONTELUKAST SODIUM

REACTIONS (10)
  - Influenza like illness [None]
  - Injection site pain [None]
  - Arthralgia [None]
  - Fatigue [None]
  - Joint range of motion decreased [None]
  - Gait inability [None]
  - Pyrexia [None]
  - Impaired work ability [None]
  - Brain fog [None]
  - Dizziness [None]

NARRATIVE: CASE EVENT DATE: 20240628
